FAERS Safety Report 13966701 (Version 1)
Quarter: 2017Q3

REPORT INFORMATION
  Report Type: Spontaneous
  Country: AU (occurrence: AU)
  Receive Date: 20170914
  Receipt Date: 20170914
  Transmission Date: 20171128
  Serious: Yes (Other)
  Sender: FDA-Public Use
  Company Number: AU-UNICHEM LABORATORIES LIMITED-UCM201709-000231

PATIENT
  Age: 35 Year
  Sex: Female

DRUGS (3)
  1. QUETIAPINE. [Suspect]
     Active Substance: QUETIAPINE
     Dosage: NIGHTLY FOR 3 MONTHS
  2. FLUVOXAMINE [Concomitant]
     Active Substance: FLUVOXAMINE
  3. AGOMELATINE [Concomitant]
     Active Substance: AGOMELATINE

REACTIONS (5)
  - Optic neuropathy [Unknown]
  - Glaucoma [Unknown]
  - Vision blurred [Unknown]
  - Corneal oedema [Recovered/Resolved]
  - Intraocular pressure increased [Recovered/Resolved]
